FAERS Safety Report 8309934-9 (Version None)
Quarter: 2012Q2

REPORT INFORMATION
  Report Type: 
  Country: None (occurrence: None)
  Receive Date: 20120425
  Receipt Date: 20120420
  Transmission Date: 20120825
  Serious: Yes (Hospitalization)
  Sender: FDA-Public Use
  Company Number: US-PFIZER INC-2012093724

PATIENT
  Sex: Female

DRUGS (4)
  1. EFFEXOR XR [Suspect]
     Dosage: UNK
  2. CELEBREX [Suspect]
     Dosage: UNK
  3. LYRICA [Suspect]
     Dosage: UNK
  4. PROTONIX [Suspect]
     Dosage: UNK

REACTIONS (2)
  - POST PROCEDURAL INFECTION [None]
  - ARTHROPATHY [None]
